FAERS Safety Report 5006132-1 (Version None)
Quarter: 2006Q1

REPORT INFORMATION
  Report Type: 
  Country: None (occurrence: None)
  Receive Date: 20060328
  Receipt Date: 20060228
  Transmission Date: 20060701
  Serious: Yes (Hospitalization)
  Sender: FDA-Public Use
  Company Number: 06P-163-0321469-00

PATIENT
  Age: 56 Year
  Sex: Female
  Weight: 100 kg

DRUGS (9)
  1. HUMIRA [Suspect]
     Indication: RHEUMATOID ARTHRITIS
     Dosage: 40 MG, 1 IN 2 WK, SUBCUTANEOUS
     Route: 058
     Dates: start: 20051109, end: 20051207
  2. FOLIC ACID [Concomitant]
  3. METHOTREXATE [Concomitant]
  4. PREDNISONE [Concomitant]
  5. ACETYLSALICYLIC ACID SRT [Concomitant]
  6. ANCOVERT [Concomitant]
  7. CELECOXIB [Concomitant]
  8. LEXAPRO [Concomitant]
  9. METHYLPREDNISOLONE [Concomitant]

REACTIONS (15)
  - ANOREXIA [None]
  - ANXIETY [None]
  - ASTHENIA [None]
  - DRY EYE [None]
  - HEADACHE [None]
  - HEPATIC FUNCTION ABNORMAL [None]
  - INITIAL INSOMNIA [None]
  - MALAISE [None]
  - NAUSEA [None]
  - NON-HODGKIN'S LYMPHOMA STAGE IV [None]
  - ORAL INTAKE REDUCED [None]
  - PAIN [None]
  - RED BLOOD CELL SEDIMENTATION RATE INCREASED [None]
  - TACHYCARDIA [None]
  - THROMBOCYTOPENIA [None]
